FAERS Safety Report 21571492 (Version 1)
Quarter: 2022Q4

REPORT INFORMATION
  Report Type: Spontaneous
  Country: CN (occurrence: CN)
  Receive Date: 20221109
  Receipt Date: 20221109
  Transmission Date: 20230113
  Serious: Yes (Life-Threatening, Other)
  Sender: FDA-Public Use
  Company Number: CN-GLAXOSMITHKLINE-CNCH2022APC043023

PATIENT

DRUGS (1)
  1. DICLOFENAC SODIUM [Suspect]
     Active Substance: DICLOFENAC SODIUM
     Indication: Pain
     Dosage: 1 DF, QD
     Route: 048
     Dates: start: 20220604, end: 20220704

REACTIONS (5)
  - Gastrointestinal perforation [Recovering/Resolving]
  - Abdominal pain [Recovering/Resolving]
  - Gastrorrhaphy [Recovering/Resolving]
  - Gastrointestinal tract irritation [Recovering/Resolving]
  - Condition aggravated [Recovering/Resolving]

NARRATIVE: CASE EVENT DATE: 20220702
